FAERS Safety Report 18558747 (Version 1)
Quarter: 2020Q4

REPORT INFORMATION
  Report Type: Spontaneous
  Country: US (occurrence: US)
  Receive Date: 20201130
  Receipt Date: 20201130
  Transmission Date: 20210114
  Serious: Yes (Other)
  Sender: FDA-Public Use
  Company Number: US-SHILPA MEDICARE LIMITED-SML-US-2020-00693

PATIENT
  Age: 6 Year
  Sex: Female

DRUGS (4)
  1. VINCRISTINE [Suspect]
     Active Substance: VINCRISTINE
     Indication: EMBRYONAL RHABDOMYOSARCOMA
     Dosage: 13 CYCLES
     Route: 065
  2. CYCLOPHOSPHAMIDE. [Suspect]
     Active Substance: CYCLOPHOSPHAMIDE
     Indication: EMBRYONAL RHABDOMYOSARCOMA
     Dosage: 13 CYCLES
     Route: 065
  3. IRINOTECAN, UNKNOWN [Suspect]
     Active Substance: IRINOTECAN
     Indication: EMBRYONAL RHABDOMYOSARCOMA
     Dosage: 13 CYCLES
     Route: 048
  4. BEVACIZUMAB. [Suspect]
     Active Substance: BEVACIZUMAB
     Indication: EMBRYONAL RHABDOMYOSARCOMA
     Route: 065

REACTIONS (2)
  - Drug ineffective [Unknown]
  - Rhabdomyosarcoma recurrent [Unknown]
